FAERS Safety Report 9248215 (Version 2)
Quarter: 2013Q2

REPORT INFORMATION
  Report Type: Spontaneous
  Country: US (occurrence: US)
  Receive Date: 20130423
  Receipt Date: 20130627
  Transmission Date: 20140414
  Serious: Yes (Hospitalization, Other)
  Sender: FDA-Public Use
  Company Number: US-BRISTOL-MYERS SQUIBB COMPANY-18799775

PATIENT
  Age: 59 Year
  Sex: Male

DRUGS (3)
  1. BYDUREON [Suspect]
     Indication: DIABETES MELLITUS
     Route: 058
     Dates: start: 201209, end: 20130401
  2. METFORMIN [Concomitant]
  3. ACTOS [Concomitant]

REACTIONS (1)
  - Pancreatitis [Recovered/Resolved]
